FAERS Safety Report 7361198-9 (Version None)
Quarter: 2011Q1

REPORT INFORMATION
  Report Type: 
  Country: None (occurrence: None)
  Receive Date: 20110318
  Receipt Date: 20110304
  Transmission Date: 20110831
  Serious: Yes (Other)
  Sender: FDA-Public Use
  Company Number: PHEH2010US01269

PATIENT
  Sex: Female

DRUGS (14)
  1. ASMANEX TWISTHALER [Concomitant]
     Dosage: 220 MCG
  2. BUPROPION [Concomitant]
     Dosage: 200 MG, UNK
  3. CITRACAL [Concomitant]
     Dosage: UNK
  4. RECLAST [Suspect]
     Dates: start: 20090206
  5. RECLAST [Suspect]
     Dates: start: 20100222
  6. FLUOXETINE HCL [Concomitant]
     Dosage: 40 MG, UNK
  7. CENTRUM SILVER [Concomitant]
  8. SIMVASTATIN [Concomitant]
     Dosage: 10 MG, UNK
  9. LORAZEPAM [Concomitant]
     Dosage: 0.5 MG, UNK
  10. FLUTICASONE PROPIONATE [Concomitant]
     Dosage: 50 MCG
  11. SYNTHROID [Concomitant]
     Dosage: 0.05 MG, UNK
  12. LISINOPRIL [Concomitant]
     Dosage: 20 MG, UNK
  13. VITAMIN D [Concomitant]
     Dosage: UNK
  14. OMEPRAZOLE [Concomitant]
     Dosage: 20 MG, UNK

REACTIONS (5)
  - BREAST TENDERNESS [None]
  - EXOSTOSIS [None]
  - BREAST MASS [None]
  - ASTHMA [None]
  - MUSCULOSKELETAL CHEST PAIN [None]
